FAERS Safety Report 15191055 (Version 2)
Quarter: 2018Q3

REPORT INFORMATION
  Report Type: Spontaneous
  Country: US (occurrence: US)
  Receive Date: 20180724
  Receipt Date: 20180731
  Transmission Date: 20181010
  Serious: No
  Sender: FDA-Public Use
  Company Number: US-TEVA-2018-US-930742

PATIENT
  Sex: Female

DRUGS (3)
  1. LORAZEPAM. [Suspect]
     Active Substance: LORAZEPAM
     Dates: start: 20180719
  2. CLONAZEPAM. [Concomitant]
     Active Substance: CLONAZEPAM
     Dosage: 1.5 MILLIGRAM DAILY;
  3. LORAZEPAM. [Suspect]
     Active Substance: LORAZEPAM
     Dosage: SINCE 2000 OR 2001

REACTIONS (5)
  - Pruritus [Unknown]
  - Rash [Unknown]
  - Anxiety [Unknown]
  - Lip swelling [Unknown]
  - Dizziness [Unknown]

NARRATIVE: CASE EVENT DATE: 20180719
